FAERS Safety Report 7489469-6 (Version None)
Quarter: 2011Q2

REPORT INFORMATION
  Report Type: 
  Country: None (occurrence: None)
  Receive Date: 20110518
  Receipt Date: 20110513
  Transmission Date: 20111010
  Serious: Yes (Other)
  Sender: FDA-Public Use
  Company Number: US-RB-025018-11

PATIENT
  Age: 46 Year
  Sex: Female

DRUGS (4)
  1. SUBOXONE [Suspect]
     Indication: PRODUCT USED FOR UNKNOWN INDICATION
     Dosage: SUBLINGUAL FILM; DOSING INFORMATION UNKNOWN
     Route: 060
  2. SUBUTEX [Suspect]
     Indication: PRODUCT USED FOR UNKNOWN INDICATION
     Dosage: DOSING INFORMATION UNKNOWN
     Route: 065
  3. BUPRENORPHINE [Suspect]
     Indication: PRODUCT USED FOR UNKNOWN INDICATION
     Dosage: DOSING DETAILS UNKNOWN.
     Route: 065
  4. SUBOXONE [Suspect]
     Indication: PRODUCT USED FOR UNKNOWN INDICATION
     Dosage: DOSING INFORMATION UNKNOWN
     Route: 060

REACTIONS (21)
  - SNEEZING [None]
  - HEADACHE [None]
  - COUGH [None]
  - WEIGHT INCREASED [None]
  - SUICIDAL IDEATION [None]
  - LACRIMATION INCREASED [None]
  - UNEVALUABLE EVENT [None]
  - DRUG WITHDRAWAL SYNDROME [None]
  - FEELING OF BODY TEMPERATURE CHANGE [None]
  - THERAPEUTIC RESPONSE DECREASED [None]
  - STRESS [None]
  - PAIN [None]
  - MUSCLE SPASMS [None]
  - ANXIETY [None]
  - DRUG DEPENDENCE [None]
  - HYPOAESTHESIA ORAL [None]
  - MIOSIS [None]
  - NAUSEA [None]
  - CONSTIPATION [None]
  - WRONG TECHNIQUE IN DRUG USAGE PROCESS [None]
  - VOMITING [None]
